FAERS Safety Report 12192032 (Version 1)
Quarter: 2016Q1

REPORT INFORMATION
  Report Type: Spontaneous
  Country: US (occurrence: US)
  Receive Date: 20160318
  Receipt Date: 20160318
  Transmission Date: 20160526
  Serious: Yes (Congenital Anomaly, Other)
  Sender: FDA-Public Use
  Company Number: US-TEVA-643135USA

PATIENT
  Age: 54 Year
  Sex: Female

DRUGS (1)
  1. COPAXONE [Suspect]
     Active Substance: GLATIRAMER ACETATE
     Indication: PRODUCT USED FOR UNKNOWN INDICATION
     Dosage: UNKNOWN FORM STRENGTH

REACTIONS (9)
  - Cerebrovascular accident [Unknown]
  - Thalamic infarction [Unknown]
  - Cerebral infarction [Unknown]
  - Diplopia [Unknown]
  - Myocardial infarction [Unknown]
  - Language disorder [Unknown]
  - Cardiac pacemaker insertion [Unknown]
  - Protein S deficiency [Unknown]
  - Asthenia [Unknown]
